FAERS Safety Report 8304838-X (Version None)
Quarter: 2012Q2

REPORT INFORMATION
  Report Type: 
  Country: None (occurrence: None)
  Receive Date: 20120423
  Receipt Date: 20120419
  Transmission Date: 20120825
  Serious: Yes (Other)
  Sender: FDA-Public Use
  Company Number: JP-PFIZER INC-2012063781

PATIENT

DRUGS (4)
  1. CADUET [Suspect]
     Dosage: AMLODIPINE BESILATE 5MG/ ATORVASTATIN CALCIUM 5MG, UNK
     Route: 048
     Dates: start: 20120201
  2. BONOTEO [Suspect]
     Dosage: UNK
     Route: 048
     Dates: start: 20111101
  3. AMLODIPINE BESILATE [Concomitant]
     Dosage: UNK
     Dates: end: 20120201
  4. LIPITOR [Suspect]
     Dosage: UNK
     Route: 048
     Dates: end: 20120201

REACTIONS (5)
  - MYALGIA [None]
  - CHROMATURIA [None]
  - RHABDOMYOLYSIS [None]
  - BLOOD CREATINE PHOSPHOKINASE INCREASED [None]
  - MUSCLE SPASMS [None]
